FAERS Safety Report 7090220-2 (Version None)
Quarter: 2010Q4

REPORT INFORMATION
  Report Type: 
  Country: None (occurrence: None)
  Receive Date: 20101109
  Receipt Date: 20101029
  Transmission Date: 20110411
  Serious: Yes (Other)
  Sender: FDA-Public Use
  Company Number: US-PERRIGO-10US014381

PATIENT
  Sex: Female
  Weight: 56.689 kg

DRUGS (6)
  1. ASPIRIN [Suspect]
     Indication: PROPHYLAXIS
     Dosage: 81 MG, QD
     Route: 048
     Dates: start: 20100927, end: 20101027
  2. CIPROFLOXACIN [Suspect]
     Indication: URINARY TRACT INFECTION
     Dosage: UNK
     Route: 048
     Dates: start: 20101001, end: 20101023
  3. ANTIEMETICS AND ANTINAUSEANTS [Suspect]
     Indication: NAUSEA
     Dosage: UNK
     Route: 048
     Dates: start: 20101021, end: 20101023
  4. ZYVOX [Suspect]
     Indication: URINARY TRACT INFECTION
     Dosage: UNK
     Route: 042
     Dates: start: 20101023, end: 20101023
  5. ZYVOX [Suspect]
     Dosage: UNK
     Route: 048
     Dates: start: 20101024, end: 20101101
  6. MULTIPLE UNSPECIFIED MEDICATIONS [Concomitant]
     Indication: PRODUCT USED FOR UNKNOWN INDICATION

REACTIONS (7)
  - ABDOMINAL DISCOMFORT [None]
  - ABDOMINAL PAIN UPPER [None]
  - CONDITION AGGRAVATED [None]
  - DEHYDRATION [None]
  - DRUG HYPERSENSITIVITY [None]
  - NAUSEA [None]
  - URINARY TRACT INFECTION [None]
